FAERS Safety Report 16794275 (Version 1)
Quarter: 2020Q3

REPORT INFORMATION
  Report Type: Spontaneous
  Country: US (occurrence: US)
  Receive Date: 20190911
  Receipt Date: 20190911
  Transmission Date: 20201104
  Serious: Yes (Hospitalization)
  Sender: FDA-Public Use
  Company Number: US-ROCHE-2269810

PATIENT
  Sex: Female
  Weight: 69.1 kg

DRUGS (32)
  1. CRIZOTINIB [Suspect]
     Active Substance: CRIZOTINIB
     Dosage: DOSE REDUCED
     Route: 048
     Dates: start: 20150410
  2. KEYTRUDA [Concomitant]
     Active Substance: PEMBROLIZUMAB
     Route: 065
     Dates: start: 20170824
  3. CRIZOTINIB [Suspect]
     Active Substance: CRIZOTINIB
     Dosage: DOSE INCREASED
     Route: 048
  4. LEVOTHYROXIN [Concomitant]
     Active Substance: LEVOTHYROXINE
     Route: 065
  5. ACYCLOVIR [ACICLOVIR] [Concomitant]
     Active Substance: ACYCLOVIR
     Route: 065
  6. PRILOCAINE [Concomitant]
     Active Substance: PRILOCAINE
     Route: 061
  7. FOLIC ACID. [Concomitant]
     Active Substance: FOLIC ACID
     Route: 065
  8. DURAGESIC [Concomitant]
     Active Substance: FENTANYL
     Dosage: 50 MG/HR TRANSDERMAL PATCH
     Route: 065
  9. CERITINIB [Concomitant]
     Active Substance: CERITINIB
     Route: 065
     Dates: start: 20160329
  10. BRIGATINIB [Concomitant]
     Active Substance: BRIGATINIB
     Route: 048
     Dates: start: 20171004
  11. DILAUDID [Concomitant]
     Active Substance: HYDROMORPHONE HYDROCHLORIDE
     Dosage: 1?2 TABLETS?EVERY 3 HOURS WHENEVER NECESSARY
     Route: 065
  12. PROAIR HFA [Concomitant]
     Active Substance: ALBUTEROL SULFATE
     Route: 065
  13. LIDOCAINE. [Concomitant]
     Active Substance: LIDOCAINE
     Route: 061
  14. DECADRON [Concomitant]
     Active Substance: DEXAMETHASONE
     Dosage: 2 MG ALTERNATING WITH 1.5 MG DAILY
     Route: 065
  15. ONDANSETRON [Concomitant]
     Active Substance: ONDANSETRON
     Route: 065
  16. TUSSIONEX PENNKINETIC [Concomitant]
     Active Substance: CHLORPHENIRAMINE\HYDROCODONE
     Dosage: 10 MG ? 8 MG / 5 ML
     Route: 065
  17. VALTREX [Concomitant]
     Active Substance: VALACYCLOVIR HYDROCHLORIDE
     Route: 065
  18. BRIGATINIB [Concomitant]
     Active Substance: BRIGATINIB
     Route: 048
     Dates: start: 20170925
  19. HYDROCORTISONE. [Concomitant]
     Active Substance: HYDROCORTISONE
     Route: 065
  20. NYSTATIN. [Concomitant]
     Active Substance: NYSTATIN
     Dosage: 100000 UNIT/ML
     Route: 048
  21. BENZONATATE. [Concomitant]
     Active Substance: BENZONATATE
     Route: 065
  22. GABAPENTIN. [Concomitant]
     Active Substance: GABAPENTIN
     Route: 065
  23. MORPHINE [Concomitant]
     Active Substance: MORPHINE
     Route: 065
  24. DOXYCYCLINE HYCLATE. [Concomitant]
     Active Substance: DOXYCYCLINE HYCLATE
     Route: 065
  25. ALECTINIB. [Suspect]
     Active Substance: ALECTINIB
     Indication: LUNG NEOPLASM MALIGNANT
     Route: 065
     Dates: start: 20170508, end: 20170714
  26. CRIZOTINIB [Suspect]
     Active Substance: CRIZOTINIB
     Indication: LUNG NEOPLASM MALIGNANT
     Route: 065
     Dates: start: 20150304
  27. KEYTRUDA [Concomitant]
     Active Substance: PEMBROLIZUMAB
     Route: 065
     Dates: start: 20170814
  28. ACETAMINOPHEN. [Concomitant]
     Active Substance: ACETAMINOPHEN
     Route: 065
  29. DIPHENHYDRAMINE. [Concomitant]
     Active Substance: DIPHENHYDRAMINE
     Dosage: 12.5 MG / 5 ML
     Route: 048
  30. NEURONTIN [Concomitant]
     Active Substance: GABAPENTIN
     Route: 065
  31. DILAUDID [Concomitant]
     Active Substance: HYDROMORPHONE HYDROCHLORIDE
     Route: 065
  32. LORAZEPAM. [Concomitant]
     Active Substance: LORAZEPAM
     Route: 065

REACTIONS (1)
  - Pneumonia [Recovering/Resolving]
